FAERS Safety Report 17604348 (Version 6)
Quarter: 2020Q2

REPORT INFORMATION
  Report Type: Spontaneous
  Country: US (occurrence: US)
  Receive Date: 20200331
  Receipt Date: 20200602
  Transmission Date: 20200713
  Serious: No
  Sender: FDA-Public Use
  Company Number: US-PFIZER INC-2019357989

PATIENT
  Age: 15 Year
  Sex: Male
  Weight: 68.04 kg

DRUGS (1)
  1. GENOTROPIN [Suspect]
     Active Substance: SOMATROPIN
     Indication: INSULIN-LIKE GROWTH FACTOR DECREASED
     Dosage: 2.6 MG, 1X/DAY
     Route: 058
     Dates: start: 20191116, end: 202003

REACTIONS (7)
  - Weight decreased [Unknown]
  - Product dose omission [Unknown]
  - Malaise [Unknown]
  - Pyrexia [Unknown]
  - Vomiting [Unknown]
  - Nasopharyngitis [Unknown]
  - Pain [Unknown]

NARRATIVE: CASE EVENT DATE: 2020
